FAERS Safety Report 16302159 (Version 3)
Quarter: 2020Q2

REPORT INFORMATION
  Report Type: Report from Study
  Country: US (occurrence: US)
  Receive Date: 20190512
  Receipt Date: 20200525
  Transmission Date: 20200713
  Serious: Yes (Hospitalization, Other)
  Sender: FDA-Public Use
  Company Number: US-ROCHE-2310545

PATIENT
  Age: 49 Year
  Sex: Female
  Weight: 90 kg

DRUGS (28)
  1. TRINTELLIX [Concomitant]
     Active Substance: VORTIOXETINE HYDROBROMIDE
     Route: 048
  2. GLUCAGON. [Concomitant]
     Active Substance: GLUCAGON
     Indication: BLOOD GLUCOSE
     Route: 030
  3. BENADRYL [Suspect]
     Active Substance: DIPHENHYDRAMINE HYDROCHLORIDE
     Route: 048
  4. BIOTIN [Concomitant]
     Active Substance: BIOTIN
     Route: 048
  5. CARAFATE [Concomitant]
     Active Substance: SUCRALFATE
     Dosage: BEFORE MELS
     Route: 048
  6. DEXTROSE. [Concomitant]
     Active Substance: DEXTROSE
     Indication: BLOOD GLUCOSE
     Dosage: 12.5 GRAMS; 25 ML
     Route: 065
  7. DOCUSATE [Concomitant]
     Active Substance: DOCUSATE
     Dosage: 1 CAPSULE
     Route: 048
  8. OCREVUS [Suspect]
     Active Substance: OCRELIZUMAB
     Dosage: INFUSE 600 MG I.V. EVERY 6 MONTHS AS DIRECTED
     Route: 042
     Dates: start: 20170716
  9. ACETAMINOPHEN. [Concomitant]
     Active Substance: ACETAMINOPHEN
     Route: 048
  10. PANTOPRAZOLE [Concomitant]
     Active Substance: PANTOPRAZOLE
     Route: 048
  11. BENADRYL [Suspect]
     Active Substance: DIPHENHYDRAMINE HYDROCHLORIDE
     Indication: PRODUCT USED FOR UNKNOWN INDICATION
     Route: 042
  12. SOLU-MEDROL [Concomitant]
     Active Substance: METHYLPREDNISOLONE SODIUM SUCCINATE
     Route: 042
  13. FUROSEMIDE. [Concomitant]
     Active Substance: FUROSEMIDE
     Route: 048
  14. LOVENOX [Concomitant]
     Active Substance: ENOXAPARIN SODIUM
     Dosage: 0.9 ML
     Route: 058
  15. MORPHINE SULPHATE [Concomitant]
     Active Substance: MORPHINE SULFATE
     Indication: PAIN
     Route: 065
  16. ONDANSETRON [Concomitant]
     Active Substance: ONDANSETRON
     Indication: NAUSEA
     Route: 048
  17. OCREVUS [Suspect]
     Active Substance: OCRELIZUMAB
     Indication: SECONDARY PROGRESSIVE MULTIPLE SCLEROSIS
     Route: 042
     Dates: start: 20170501
  18. XARELTO [Concomitant]
     Active Substance: RIVAROXABAN
     Route: 048
  19. DIPHENHYDRAMINE. [Concomitant]
     Active Substance: DIPHENHYDRAMINE
     Route: 042
  20. BACLOFEN. [Concomitant]
     Active Substance: BACLOFEN
     Route: 048
  21. LEVOTHYROXINE. [Concomitant]
     Active Substance: LEVOTHYROXINE
     Dosage: DAILY MILK THISTLE
     Route: 065
  22. NORCO [Concomitant]
     Active Substance: ACETAMINOPHEN\HYDROCODONE BITARTRATE
     Dosage: 5/325
     Route: 048
  23. LIOTHYRONINE [Concomitant]
     Active Substance: LIOTHYRONINE
     Route: 048
  24. OCREVUS [Suspect]
     Active Substance: OCRELIZUMAB
     Indication: MULTIPLE SCLEROSIS
     Route: 042
  25. MELATONIN [Concomitant]
     Active Substance: MELATONIN
     Indication: INSOMNIA
     Dosage: BEDTIME
     Route: 048
  26. ONDANSETRON [Concomitant]
     Active Substance: ONDANSETRON
     Indication: VOMITING
  27. OCREVUS [Suspect]
     Active Substance: OCRELIZUMAB
     Dosage: INFUSE 600 MG I.V. EVERY 6 MONTHS AS DIRECTED
     Route: 042
     Dates: start: 20170806
  28. BUSPIRONE [Concomitant]
     Active Substance: BUSPIRONE HYDROCHLORIDE
     Route: 048

REACTIONS (6)
  - Fatigue [Unknown]
  - Intentional product use issue [Unknown]
  - Urinary tract infection [Unknown]
  - Multiple sclerosis relapse [Not Recovered/Not Resolved]
  - Somnolence [Unknown]
  - Off label use [Unknown]

NARRATIVE: CASE EVENT DATE: 20200221
